FAERS Safety Report 17873897 (Version 2)
Quarter: 2020Q2

REPORT INFORMATION
  Report Type: Spontaneous
  Country: US (occurrence: US)
  Receive Date: 20200609
  Receipt Date: 20200625
  Transmission Date: 20200714
  Serious: Yes (Other)
  Sender: FDA-Public Use
  Company Number: US-SA-2020SA137768

PATIENT

DRUGS (9)
  1. GABAPENTIN. [Concomitant]
     Active Substance: GABAPENTIN
  2. VITAMIN B COMPLEX [Concomitant]
     Active Substance: CYANOCOBALAMIN\DEXPANTHENOL\NIACINAMIDE\PYRIDOXINE HYDROCHLORIDE\RIBOFLAVIN 5^-PHOSPHATE SODIUM\THIAMINE HYDROCHLORIDE\VITAMIN B COMPLEX
  3. ISOSORBIDE. [Concomitant]
     Active Substance: ISOSORBIDE
  4. VERAPAMIL [Concomitant]
     Active Substance: VERAPAMIL HYDROCHLORIDE
  5. VITAMIN B3 [Concomitant]
     Active Substance: NIACIN
  6. KEPPRA [Concomitant]
     Active Substance: LEVETIRACETAM
  7. VITAMIN C [Concomitant]
     Active Substance: ASCORBIC ACID
  8. ATORVASTATIN [Concomitant]
     Active Substance: ATORVASTATIN
  9. AMBIEN [Suspect]
     Active Substance: ZOLPIDEM TARTRATE
     Indication: INSOMNIA

REACTIONS (14)
  - Fall [Unknown]
  - Dysphonia [Recovered/Resolved]
  - Osteoarthritis [Unknown]
  - Mobility decreased [Unknown]
  - Bone pain [Not Recovered/Not Resolved]
  - Spinal compression fracture [Unknown]
  - Pain [Unknown]
  - Back pain [Unknown]
  - Blindness unilateral [Unknown]
  - Peripheral coldness [Recovering/Resolving]
  - Incontinence [Unknown]
  - Ulcer [Unknown]
  - Nightmare [Unknown]
  - Insomnia [Unknown]
